FAERS Safety Report 16345325 (Version 1)
Quarter: 2019Q2

REPORT INFORMATION
  Report Type: Spontaneous
  Country: US (occurrence: US)
  Receive Date: 20190523
  Receipt Date: 20190523
  Transmission Date: 20190711
  Serious: No
  Sender: FDA-Public Use
  Company Number: US-009507513-1905USA007526

PATIENT
  Sex: Female

DRUGS (1)
  1. NEXPLANON [Suspect]
     Active Substance: ETONOGESTREL
     Indication: PRODUCT USE IN UNAPPROVED INDICATION
     Dosage: 1 DOSAGE FORM, ONE TIME
     Route: 059
     Dates: start: 20181029, end: 20190111

REACTIONS (2)
  - Drug ineffective for unapproved indication [Unknown]
  - Menorrhagia [Unknown]
